FAERS Safety Report 8541966-8 (Version None)
Quarter: 2012Q3

REPORT INFORMATION
  Report Type: 
  Country: None (occurrence: None)
  Receive Date: 20120726
  Receipt Date: 20111123
  Transmission Date: 20120928
  Serious: No
  Sender: FDA-Public Use
  Company Number: US-ASTRAZENECA-2011SE59075

PATIENT
  Sex: Male

DRUGS (2)
  1. STEROIDS [Interacting]
     Route: 065
  2. SEROQUEL XR [Suspect]
     Indication: CONFUSIONAL STATE
     Route: 048

REACTIONS (4)
  - PSYCHOTIC DISORDER [None]
  - POTENTIATING DRUG INTERACTION [None]
  - OFF LABEL USE [None]
  - FEELING ABNORMAL [None]
